FAERS Safety Report 7395830-0 (Version None)
Quarter: 2011Q2

REPORT INFORMATION
  Report Type: 
  Country: None (occurrence: None)
  Receive Date: 20110405
  Receipt Date: 20110322
  Transmission Date: 20111010
  Serious: Yes (Other)
  Sender: FDA-Public Use
  Company Number: JP-GENENTECH-296664

PATIENT
  Sex: Male

DRUGS (8)
  1. CEFMENOXIME HYDROCHLORIDE [Concomitant]
     Dosage: UNK
     Dates: end: 20090901
  2. LEVOFLOXACIN [Concomitant]
     Indication: PRODUCT USED FOR UNKNOWN INDICATION
     Dosage: UNK
     Dates: start: 20090701
  3. RANIBIZUMAB [Suspect]
     Dosage: 0.05 ML, UNK
     Route: 031
     Dates: start: 20090907
  4. LEVOFLOXACIN [Concomitant]
     Dosage: UNK
     Dates: end: 20090901
  5. RANIBIZUMAB [Suspect]
     Indication: POLYPOIDAL CHOROIDAL VASCULOPATHY
     Dosage: 0.05 ML, UNK
     Route: 031
     Dates: start: 20090713
  6. RANIBIZUMAB [Suspect]
     Dosage: 0.05 ML, UNK
     Route: 031
     Dates: start: 20090810
  7. CEFMENOXIME HYDROCHLORIDE [Concomitant]
     Indication: PRODUCT USED FOR UNKNOWN INDICATION
     Dosage: UNK
     Dates: start: 20090701
  8. MACUGEN [Concomitant]
     Indication: PRODUCT USED FOR UNKNOWN INDICATION
     Dosage: UNK
     Dates: start: 20081201, end: 20090301

REACTIONS (4)
  - CONJUNCTIVITIS ALLERGIC [None]
  - ASTHENOPIA [None]
  - VITREOUS HAEMORRHAGE [None]
  - EYE PRURITUS [None]
